FAERS Safety Report 6408704-6 (Version None)
Quarter: 2009Q4

REPORT INFORMATION
  Report Type: 
  Country: None (occurrence: None)
  Receive Date: 20091021
  Receipt Date: 20091007
  Transmission Date: 20100525
  Serious: No
  Sender: FDA-Public Use
  Company Number: US-JNJFOC-20081100788

PATIENT
  Sex: Female

DRUGS (21)
  1. CISAPRIDE [Suspect]
     Route: 048
  2. CISAPRIDE [Suspect]
     Indication: GASTROOESOPHAGEAL REFLUX DISEASE
     Route: 048
  3. CIPRO [Concomitant]
     Indication: OVERGROWTH BACTERIAL
     Route: 048
  4. FUROSEMIDE [Concomitant]
     Indication: OEDEMA
     Route: 048
  5. POTASSIUM CHLORIDE [Concomitant]
     Indication: ELECTROLYTE SUBSTITUTION THERAPY
     Route: 048
  6. SLOFE [Concomitant]
     Indication: MINERAL SUPPLEMENTATION
     Route: 048
  7. VITAMIN B-12 [Concomitant]
     Indication: VITAMIN SUPPLEMENTATION
     Route: 065
  8. MULTI-VITAMIN [Concomitant]
     Indication: VITAMIN SUPPLEMENTATION
     Route: 048
  9. VITAMIN E [Concomitant]
     Indication: VITAMIN SUPPLEMENTATION
     Route: 048
  10. VITAMIN B6 [Concomitant]
     Indication: VITAMIN SUPPLEMENTATION
     Route: 065
  11. CAL-MAG CITRATE [Concomitant]
     Indication: VITAMIN SUPPLEMENTATION
     Route: 048
  12. SELENIUM [Concomitant]
     Indication: VITAMIN SUPPLEMENTATION
     Route: 048
  13. GLUCOSAMINE/CHONDROITIN [Concomitant]
     Indication: OSTEOARTHRITIS
     Route: 048
  14. HYOSCYAMINE SULPHATE [Concomitant]
     Indication: ABDOMINAL PAIN
     Route: 065
  15. HYDROCODONE BITARTRATE AND ACETAMINOPHEN [Concomitant]
     Indication: BACK PAIN
     Dosage: 7.5/750MG
     Route: 065
  16. CELEXA [Concomitant]
     Indication: ANXIETY
     Route: 065
  17. TOPAMAX [Concomitant]
     Indication: INTERVERTEBRAL DISC DISORDER
     Route: 065
  18. NEXIUM [Concomitant]
     Indication: GASTROOESOPHAGEAL REFLUX DISEASE
     Route: 065
  19. ALENE [Concomitant]
     Indication: FACIAL PAIN
     Route: 065
  20. OXYCONTIN [Concomitant]
     Indication: SCIATICA
     Route: 065
  21. GEMZAR [Concomitant]
     Indication: PANCREATIC CARCINOMA
     Route: 065

REACTIONS (1)
  - ELECTROCARDIOGRAM QT PROLONGED [None]
